FAERS Safety Report 7538002-9 (Version None)
Quarter: 2011Q2

REPORT INFORMATION
  Report Type: 
  Country: None (occurrence: None)
  Receive Date: 20110609
  Receipt Date: 20110603
  Transmission Date: 20111010
  Serious: Yes (Other)
  Sender: FDA-Public Use
  Company Number: US-PFIZER INC-2011121542

PATIENT
  Age: 83 Year
  Sex: Male
  Weight: 99 kg

DRUGS (7)
  1. METOPROLOL [Concomitant]
     Dosage: 75 MG, 2X/DAY
  2. SOTALOL [Concomitant]
     Dosage: UNK, 2X/DAY
  3. LABETALOL [Concomitant]
     Dosage: 25 MG, UNK
  4. CRESTOR [Concomitant]
     Indication: BLOOD CHOLESTEROL ABNORMAL
     Dosage: UNK
  5. WARFARIN SODIUM [Concomitant]
     Indication: ANTICOAGULANT THERAPY
     Dosage: UNK
  6. XALATAN [Suspect]
     Indication: GLAUCOMA
     Dosage: ONE TIME A DAY IN BOTH EYES
     Route: 047
     Dates: start: 20100601
  7. HYDROXYZINE [Concomitant]
     Dosage: 10 MG, 2X/DAY

REACTIONS (4)
  - PROTEIN TOTAL ABNORMAL [None]
  - EYELID IRRITATION [None]
  - RASH [None]
  - EYE IRRITATION [None]
